FAERS Safety Report 23775821 (Version 2)
Quarter: 2024Q2

REPORT INFORMATION
  Report Type: Spontaneous
  Country: US (occurrence: US)
  Receive Date: 20240424
  Receipt Date: 20240426
  Transmission Date: 20240716
  Serious: Yes (Hospitalization)
  Sender: FDA-Public Use
  Company Number: US-BRISTOL-MYERS SQUIBB COMPANY-2024-061609

PATIENT
  Age: 77 Year
  Sex: Male

DRUGS (5)
  1. REVLIMID [Suspect]
     Active Substance: LENALIDOMIDE
     Indication: Plasma cell myeloma
     Dosage: DOSE : 25 MG;     FREQ : 1 CAPSULE DAILY FOR 21 DAYS AND OFF 7 DAYS BY MOUTH
     Route: 048
     Dates: start: 20240405
  2. UREA [Concomitant]
     Active Substance: UREA
     Indication: Product used for unknown indication
     Route: 048
  3. POTASSIUM [Concomitant]
     Active Substance: POTASSIUM
     Indication: Product used for unknown indication
  4. SODIUM PHOSPHATE [Concomitant]
     Active Substance: SODIUM PHOSPHATE
     Indication: Product used for unknown indication
     Dosage: 280/160 TWO TIMES DAILY
  5. TAMSULOSIN [Concomitant]
     Active Substance: TAMSULOSIN
     Indication: Product used for unknown indication

REACTIONS (2)
  - Hyponatraemia [Unknown]
  - Constipation [Unknown]

NARRATIVE: CASE EVENT DATE: 20240406
